FAERS Safety Report 5366348-1 (Version None)
Quarter: 2007Q2

REPORT INFORMATION
  Report Type: 
  Country: None (occurrence: None)
  Receive Date: 20070622
  Receipt Date: 20070612
  Transmission Date: 20071010
  Serious: Yes (Other)
  Sender: FDA-Public Use
  Company Number: FR-JNJFOC-20070603174

PATIENT
  Sex: Male
  Weight: 62 kg

DRUGS (3)
  1. REMICADE [Suspect]
     Route: 042
  2. REMICADE [Suspect]
     Indication: CROHN'S DISEASE
     Route: 042
  3. PENTASA [Concomitant]

REACTIONS (4)
  - ANAEMIA [None]
  - INTESTINAL HAEMORRHAGE [None]
  - INTESTINAL STENOSIS [None]
  - WEIGHT DECREASED [None]
